FAERS Safety Report 7249436-4 (Version None)
Quarter: 2011Q1

REPORT INFORMATION
  Report Type: 
  Country: None (occurrence: None)
  Receive Date: 20110128
  Receipt Date: 20101220
  Transmission Date: 20110831
  Serious: Yes (Other)
  Sender: FDA-Public Use
  Company Number: US-BAYER-2010-006646

PATIENT
  Sex: Male
  Weight: 127 kg

DRUGS (7)
  1. ALKA-SELTZER PLUS COLD + COUGH [Suspect]
     Indication: PRODUCT USED FOR UNKNOWN INDICATION
     Dosage: 1 DF, QD
     Dates: start: 20101215
  2. XANAX [Concomitant]
  3. FINASTERIDE [Concomitant]
  4. UNKNOWN DRUG [Concomitant]
  5. LISINOPRIL [Concomitant]
  6. CENTRALLY ACTING SYMPATHOMIMETICS [Concomitant]
  7. METFORMIN [Concomitant]

REACTIONS (1)
  - BLOOD GLUCOSE INCREASED [None]
